FAERS Safety Report 7640282-6 (Version None)
Quarter: 2011Q3

REPORT INFORMATION
  Report Type: 
  Country: None (occurrence: None)
  Receive Date: 20110728
  Receipt Date: 20110711
  Transmission Date: 20111222
  Serious: Yes (Hospitalization, Other)
  Sender: FDA-Public Use
  Company Number: US-BAYER-2011-018463

PATIENT
  Age: 33 Year
  Sex: Female
  Weight: 106.58 kg

DRUGS (9)
  1. YAZ [Suspect]
     Indication: CONTRACEPTION
     Dosage: UNK
     Route: 048
     Dates: start: 20081001, end: 20090301
  2. PROPRANOLOL [Concomitant]
     Dosage: 40 MG, UNK
     Route: 048
     Dates: start: 20090309
  3. NORVASC [Concomitant]
     Dosage: 10 MG, QD
     Route: 048
     Dates: start: 20090325
  4. TAPAZOLE [Concomitant]
     Dosage: 30 MG, TID
     Route: 048
     Dates: start: 20090325
  5. PHENERGAN HCL [Concomitant]
     Dosage: 25 MG, UNK
     Dates: start: 20090325
  6. ACETAMINOPHEN AND HYDROCODONE BITARTRATE [Concomitant]
     Indication: PAIN
     Dosage: UNK
     Dates: start: 20090325
  7. TYLENOL W/ CODEINE [Concomitant]
     Dosage: 60 MG, UNK
     Route: 048
     Dates: start: 20090320
  8. LISINOPRIL [Concomitant]
     Dosage: 10 MG, QD
     Route: 048
     Dates: start: 20090226
  9. AMOXICILLIN [Concomitant]
     Dosage: 875 MG, UNK
     Route: 048
     Dates: start: 20090303

REACTIONS (4)
  - PAIN [None]
  - MENORRHAGIA [None]
  - EMOTIONAL DISTRESS [None]
  - SUPERIOR SAGITTAL SINUS THROMBOSIS [None]
